FAERS Safety Report 11785081 (Version 1)
Quarter: 2015Q4

REPORT INFORMATION
  Report Type: Spontaneous
  Country: None (occurrence: None)
  Receive Date: 20151125
  Receipt Date: 20151125
  Transmission Date: 20160305
  Serious: No
  Sender: FDA-Public Use
  Company Number: None

PATIENT
  Age: 41 Year
  Sex: Female

DRUGS (1)
  1. BEST TOPICAL EVER [Suspect]
     Active Substance: LIDOCAINE\PHENYLEPHRINE\PRILOCAINE\TETRACAINE
     Indication: THERAPEUTIC SKIN CARE TOPICAL

REACTIONS (7)
  - Application site discolouration [None]
  - Application site exfoliation [None]
  - Application site ulcer [None]
  - Contusion [None]
  - Oral disorder [None]
  - Pain [None]
  - Incorrect drug administration duration [None]

NARRATIVE: CASE EVENT DATE: 20150804
